FAERS Safety Report 24841090 (Version 1)
Quarter: 2025Q1

REPORT INFORMATION
  Report Type: Spontaneous
  Country: JP (occurrence: JP)
  Receive Date: 20250114
  Receipt Date: 20250114
  Transmission Date: 20250409
  Serious: Yes (Death, Other)
  Sender: DR REDDYS
  Company Number: JP-RDY-JPN/2025/01/000508

PATIENT
  Age: 64 Year
  Sex: Female

DRUGS (5)
  1. AZACITIDINE [Suspect]
     Active Substance: AZACITIDINE
     Indication: Acute myelomonocytic leukaemia
  2. HYDROXYUREA [Suspect]
     Active Substance: HYDROXYUREA
     Indication: Acute myelomonocytic leukaemia
  3. PREDNISOLONE [Suspect]
     Active Substance: PREDNISOLONE
     Indication: Pericarditis
  4. ASPIRIN [Suspect]
     Active Substance: ASPIRIN
     Indication: Pericarditis
  5. COLCHICINE [Suspect]
     Active Substance: COLCHICINE
     Indication: Pericarditis

REACTIONS (3)
  - Cerebral haemorrhage [Fatal]
  - Disseminated intravascular coagulation [Fatal]
  - Brain herniation [Fatal]
